FAERS Safety Report 5364692-5 (Version None)
Quarter: 2007Q2

REPORT INFORMATION
  Report Type: 
  Country: None (occurrence: None)
  Receive Date: 20070621
  Receipt Date: 20070611
  Transmission Date: 20071010
  Serious: Yes (Hospitalization)
  Sender: FDA-Public Use
  Company Number: PHRM2007FR01639

PATIENT
  Age: 56 Year
  Sex: Male

DRUGS (2)
  1. FRACTAL [Suspect]
     Dosage: 80 MG, QD
     Route: 048
     Dates: end: 20070410
  2. COTAREG [Suspect]
     Dosage: 1 DF, QD
     Route: 048
     Dates: end: 20070410

REACTIONS (4)
  - NAUSEA [None]
  - PARAESTHESIA [None]
  - VERTIGO [None]
  - VOMITING [None]
